FAERS Safety Report 14421097 (Version 3)
Quarter: 2018Q2

REPORT INFORMATION
  Report Type: Not Available
  Country: US (occurrence: US)
  Receive Date: 20180122
  Receipt Date: 20180508
  Transmission Date: 20180711
  Serious: No
  Sender: FDA-Public Use
  Company Number: US-NEUROCRINE BIOSCIENCES INC.-2018NBI00056

PATIENT
  Age: 65 Year
  Sex: Male

DRUGS (7)
  1. INGREZZA [Suspect]
     Active Substance: VALBENAZINE
     Indication: PRODUCT USED FOR UNKNOWN INDICATION
     Route: 048
     Dates: start: 20171204, end: 201712
  2. INGREZZA [Suspect]
     Active Substance: VALBENAZINE
     Route: 048
     Dates: start: 20180116, end: 201801
  3. INGREZZA [Suspect]
     Active Substance: VALBENAZINE
     Dosage: CUTS THE MEDICATION IN HALF AND TAKES 20MG DAILY
     Route: 048
     Dates: start: 20180129
  4. INGREZZA [Suspect]
     Active Substance: VALBENAZINE
     Dosage: CUTTING 80 MG CAPSULES IN HALF TO TAKE 40 MG DAILY
     Route: 048
     Dates: start: 201801, end: 201801
  5. INGREZZA [Suspect]
     Active Substance: VALBENAZINE
     Route: 048
     Dates: start: 201712
  6. NUVIGIL [Concomitant]
     Active Substance: ARMODAFINIL
  7. INGREZZA [Suspect]
     Active Substance: VALBENAZINE
     Route: 048
     Dates: start: 20180108, end: 20180115

REACTIONS (6)
  - Somnolence [Unknown]
  - Lethargy [Unknown]
  - Wrong technique in product usage process [Unknown]
  - Depressed mood [Unknown]
  - Fatigue [Not Recovered/Not Resolved]
  - Asthenia [Unknown]

NARRATIVE: CASE EVENT DATE: 201712
